FAERS Safety Report 9007576 (Version 1)
Quarter: 2013Q1

REPORT INFORMATION
  Report Type: Spontaneous
  Country: US (occurrence: US)
  Receive Date: 20130111
  Receipt Date: 20130111
  Transmission Date: 20140127
  Serious: Yes (Other)
  Sender: FDA-Public Use
  Company Number: US-MERCK-0907USA03619

PATIENT
  Age: 7 Year
  Sex: Male
  Weight: 23.59 kg

DRUGS (3)
  1. SINGULAIR [Suspect]
     Indication: ASTHMA
     Dosage: CHEWABLE TABLET NIGHTLY AT BEDTIME
     Route: 048
  2. SINGULAIR [Suspect]
     Indication: RHINITIS ALLERGIC
  3. FLUTICASONE [Concomitant]

REACTIONS (10)
  - Weight decreased [Unknown]
  - Aggression [Recovering/Resolving]
  - Decreased appetite [Recovering/Resolving]
  - Disturbance in attention [Recovering/Resolving]
  - Educational problem [Recovering/Resolving]
  - Fight in school [Recovering/Resolving]
  - Hallucination [Recovering/Resolving]
  - Irritability [Not Recovered/Not Resolved]
  - Nightmare [Unknown]
  - Thirst [Unknown]
